FAERS Safety Report 8521095-X (Version None)
Quarter: 2012Q3

REPORT INFORMATION
  Report Type: 
  Country: None (occurrence: None)
  Receive Date: 20120719
  Receipt Date: 20120713
  Transmission Date: 20120928
  Serious: Yes (Other)
  Sender: FDA-Public Use
  Company Number: US-ROCHE-1088273

PATIENT
  Sex: Female

DRUGS (6)
  1. TYKERB [Concomitant]
     Indication: BREAST CANCER METASTATIC
  2. PHENERGAN HCL [Concomitant]
  3. LOMOTIL [Concomitant]
  4. HERCEPTIN [Suspect]
     Route: 042
  5. HERCEPTIN [Suspect]
     Indication: BREAST CANCER METASTATIC
     Route: 042
     Dates: start: 20101001
  6. ZOFRAN [Concomitant]

REACTIONS (2)
  - HEPATIC ENZYME INCREASED [None]
  - DISEASE PROGRESSION [None]
